FAERS Safety Report 10027606 (Version 1)
Quarter: 2014Q1

REPORT INFORMATION
  Report Type: Spontaneous
  Country: KP (occurrence: None)
  Receive Date: 20140318
  Receipt Date: 20140318
  Transmission Date: 20141002
  Serious: Yes (Hospitalization, Other)
  Sender: FDA-Public Use
  Company Number: KR-ALKEM-000526

PATIENT
  Age: 31 Year
  Sex: Female

DRUGS (2)
  1. QUETIAPINE [Suspect]
     Indication: MANIA
  2. OLANZAPINE [Suspect]
     Indication: MANIA

REACTIONS (11)
  - Oligohydramnios [None]
  - Caesarean section [None]
  - Persecutory delusion [None]
  - Maternal exposure during pregnancy [None]
  - Pregnancy [None]
  - Nausea [None]
  - Vomiting [None]
  - Depressed mood [None]
  - Apathy [None]
  - Decreased appetite [None]
  - Mania [None]
